FAERS Safety Report 11227700 (Version 3)
Quarter: 2015Q3

REPORT INFORMATION
  Report Type: Spontaneous
  Country: US (occurrence: US)
  Receive Date: 20150630
  Receipt Date: 20150730
  Transmission Date: 20151125
  Serious: Yes (Other)
  Sender: FDA-Public Use
  Company Number: US-009507513-1506USA013723

PATIENT
  Age: 57 Year
  Sex: Male
  Weight: 110.2 kg

DRUGS (2)
  1. RAGWITEK [Suspect]
     Active Substance: AMBROSIA ARTEMISIIFOLIA POLLEN
     Dosage: 1 DF, ONCE
     Route: 060
     Dates: start: 20150611, end: 20150611
  2. RAGWITEK [Suspect]
     Active Substance: AMBROSIA ARTEMISIIFOLIA POLLEN
     Indication: SEASONAL ALLERGY
     Dosage: 1 DF, ONCE
     Route: 060
     Dates: start: 20150611, end: 20150611

REACTIONS (4)
  - Paraesthesia oral [Recovered/Resolved]
  - Chest discomfort [Recovering/Resolving]
  - Paraesthesia [Recovered/Resolved]
  - Flushing [Recovered/Resolved]

NARRATIVE: CASE EVENT DATE: 20150611
